FAERS Safety Report 14452841 (Version 5)
Quarter: 2018Q2

REPORT INFORMATION
  Report Type: Report from Study
  Country: KR (occurrence: KR)
  Receive Date: 20180129
  Receipt Date: 20180416
  Transmission Date: 20180711
  Serious: Yes (Death, Hospitalization)
  Sender: FDA-Public Use
  Company Number: KR-EISAI MEDICAL RESEARCH-EC-2017-033917

PATIENT
  Age: 79 Year
  Sex: Female
  Weight: 60 kg

DRUGS (16)
  1. EVEROLIMUS. [Suspect]
     Active Substance: EVEROLIMUS
     Indication: RENAL CELL CARCINOMA
     Route: 048
     Dates: start: 20171011, end: 20171105
  2. MUTERAN [Concomitant]
     Active Substance: ACETYLCYSTEINE
  3. PARAMACET [Concomitant]
     Active Substance: ACETAMINOPHEN\TRAMADOL
  4. LENVATINIB [Suspect]
     Active Substance: LENVATINIB
     Indication: RENAL CELL CARCINOMA
     Route: 048
     Dates: start: 20171011, end: 20171105
  5. EVEROLIMUS. [Suspect]
     Active Substance: EVEROLIMUS
     Route: 048
     Dates: start: 20171115, end: 20171126
  6. EVEROLIMUS. [Suspect]
     Active Substance: EVEROLIMUS
     Route: 048
     Dates: start: 20171213, end: 20180102
  7. EVEROLIMUS. [Suspect]
     Active Substance: EVEROLIMUS
     Route: 048
     Dates: start: 20180110, end: 20180117
  8. HERBEN [Concomitant]
     Active Substance: DILTIAZEM HYDROCHLORIDE
  9. LENVATINIB [Suspect]
     Active Substance: LENVATINIB
     Route: 048
     Dates: start: 20180110, end: 20180117
  10. CIRCADIN [Concomitant]
     Active Substance: MELATONIN
  11. LENVATINIB [Suspect]
     Active Substance: LENVATINIB
     Route: 048
     Dates: start: 20171115, end: 20171126
  12. DEXAMETHASONE. [Concomitant]
     Active Substance: DEXAMETHASONE
  13. COVELITO [Concomitant]
  14. FERROUS SULFATE. [Concomitant]
     Active Substance: FERROUS SULFATE
  15. LENVATINIB [Suspect]
     Active Substance: LENVATINIB
     Route: 048
     Dates: start: 20171213, end: 20180102
  16. SMECTA [Concomitant]
     Active Substance: MONTMORILLONITE

REACTIONS (4)
  - Pneumonia [Recovered/Resolved]
  - Epistaxis [Recovering/Resolving]
  - Small intestinal perforation [Recovering/Resolving]
  - Malignant neoplasm progression [Fatal]

NARRATIVE: CASE EVENT DATE: 20171206
